FAERS Safety Report 9348599 (Version 2)
Quarter: 2013Q3

REPORT INFORMATION
  Report Type: Report from Study
  Country: US (occurrence: US)
  Receive Date: 20130614
  Receipt Date: 20130701
  Transmission Date: 20140515
  Serious: Yes (Other)
  Sender: FDA-Public Use
  Company Number: US-SANOFI-AVENTIS-2013SA059333

PATIENT
  Age: 36 Year
  Sex: Female
  Weight: 73 kg

DRUGS (6)
  1. AUBAGIO [Suspect]
     Indication: MULTIPLE SCLEROSIS
     Route: 048
     Dates: start: 20130526, end: 20130603
  2. CYMBALTA [Concomitant]
     Indication: DEPRESSION
     Dates: start: 201103
  3. CYMBALTA [Concomitant]
     Indication: ANXIETY
     Dates: start: 201103
  4. TIZANIDINE [Concomitant]
     Indication: ANXIETY
     Dates: start: 201205
  5. CLONAZEPAM [Concomitant]
     Indication: SLEEP DISORDER
     Dates: start: 201205
  6. AMINOPYRIDINE [Concomitant]
     Dates: start: 201211

REACTIONS (3)
  - Multiple sclerosis relapse [Recovered/Resolved]
  - Skin disorder [Recovered/Resolved]
  - Alopecia [Recovered/Resolved]
